FAERS Safety Report 8295101-4 (Version None)
Quarter: 2012Q2

REPORT INFORMATION
  Report Type: 
  Country: None (occurrence: None)
  Receive Date: 20120413
  Receipt Date: 20120402
  Transmission Date: 20120825
  Serious: Yes (Other)
  Sender: FDA-Public Use
  Company Number: 2012MA004446

PATIENT
  Age: 38 Year
  Sex: Male

DRUGS (4)
  1. FLUOXETINE [Concomitant]
  2. MIRTAZAPINE [Suspect]
     Indication: DEPRESSED MOOD
     Dosage: 30 MG;PO
     Route: 048
     Dates: start: 20120104
  3. MIRTAZAPINE [Suspect]
     Indication: DEPRESSED MOOD
     Dosage: 15 MG;PO
     Route: 048
     Dates: start: 20120104
  4. FLUOXETINE [Concomitant]

REACTIONS (3)
  - IRRITABILITY [None]
  - CONFUSIONAL STATE [None]
  - PARANOIA [None]
